FAERS Safety Report 13365367 (Version 1)
Quarter: 2017Q1

REPORT INFORMATION
  Report Type: Spontaneous
  Country: US (occurrence: US)
  Receive Date: 20170323
  Receipt Date: 20170323
  Transmission Date: 20170429
  Serious: No
  Sender: FDA-Public Use
  Company Number: US-WARNER CHILCOTT-2015-000199

PATIENT
  Sex: Female

DRUGS (8)
  1. ESTRACE [Suspect]
     Active Substance: ESTRADIOL
     Indication: ATROPHIC VULVOVAGINITIS
     Dosage: 2 G, 3 TIMES WEEKLY
     Route: 067
     Dates: start: 2008
  2. VITAMIN B NOS [Concomitant]
     Active Substance: VITAMIN B
     Dosage: UNKNOWN
     Route: 065
  3. VITAMIN D [Concomitant]
     Active Substance: CHOLECALCIFEROL
     Dosage: UNK, UNKNOWN
     Route: 065
  4. OMEPRAZOLE. [Concomitant]
     Active Substance: OMEPRAZOLE
     Dosage: UNK, UNKNOWN
  5. NABUMETONE. [Concomitant]
     Active Substance: NABUMETONE
     Indication: ARTHRITIS
     Dosage: UNKNOWN
     Route: 065
  6. METFORMIN [Concomitant]
     Active Substance: METFORMIN HYDROCHLORIDE
     Indication: BLOOD GLUCOSE ABNORMAL
     Dosage: UNK, UNKNOWN
  7. ESTRACE [Suspect]
     Active Substance: ESTRADIOL
     Dosage: UNK UNK, UNKNOWN
     Route: 067
  8. MULTIVITAMIN                       /00831701/ [Concomitant]
     Active Substance: VITAMINS
     Dosage: UNK, UNKNOWN

REACTIONS (5)
  - Hot flush [Not Recovered/Not Resolved]
  - Vulvovaginal dryness [Unknown]
  - Drug ineffective [Unknown]
  - Atrophic vulvovaginitis [Not Recovered/Not Resolved]
  - Genital hypoaesthesia [Unknown]

NARRATIVE: CASE EVENT DATE: 201609
